FAERS Safety Report 16184032 (Version 1)
Quarter: 2019Q2

REPORT INFORMATION
  Report Type: Spontaneous
  Country: US (occurrence: US)
  Receive Date: 20190411
  Receipt Date: 20190411
  Transmission Date: 20190711
  Serious: No
  Sender: FDA-Public Use
  Company Number: US-009507513-1903USA012613

PATIENT
  Age: 17 Year
  Sex: Female
  Weight: 72.56 kg

DRUGS (2)
  1. HYDROXYZINE [Concomitant]
     Active Substance: HYDROXYZINE HYDROCHLORIDE
  2. NEXPLANON [Suspect]
     Active Substance: ETONOGESTREL
     Indication: CONTRACEPTION
     Dosage: 1 LEFT IMPANT, FREQUENCY: 3 YEARS
     Route: 059
     Dates: start: 20180601

REACTIONS (4)
  - Depression [Unknown]
  - Headache [Unknown]
  - Weight increased [Unknown]
  - Menstruation normal [Not Recovered/Not Resolved]

NARRATIVE: CASE EVENT DATE: 20190326
